FAERS Safety Report 7717961-5 (Version None)
Quarter: 2011Q3

REPORT INFORMATION
  Report Type: 
  Country: None (occurrence: None)
  Receive Date: 20110830
  Receipt Date: 20110822
  Transmission Date: 20111222
  Serious: Yes (Hospitalization, Other)
  Sender: FDA-Public Use
  Company Number: CA-JNJFOC-20110606486

PATIENT
  Sex: Male
  Weight: 104.5 kg

DRUGS (10)
  1. VOLTAREN [Concomitant]
  2. PERCOCET [Concomitant]
  3. REMICADE [Suspect]
     Route: 042
     Dates: start: 20110721
  4. SIMPONI [Suspect]
     Indication: PRODUCT USED FOR UNKNOWN INDICATION
     Route: 058
  5. FOLIC ACID [Concomitant]
  6. REMICADE [Suspect]
     Indication: RHEUMATOID ARTHRITIS
     Route: 042
     Dates: start: 20110315
  7. REMICADE [Suspect]
     Route: 042
     Dates: start: 20110426
  8. REMICADE [Suspect]
     Route: 042
     Dates: start: 20110515
  9. PREVACID [Concomitant]
  10. SYNTHROID [Concomitant]

REACTIONS (2)
  - DRUG EFFECT DECREASED [None]
  - KNEE ARTHROPLASTY [None]
